FAERS Safety Report 21553945 (Version 5)
Quarter: 2023Q2

REPORT INFORMATION
  Report Type: Spontaneous
  Country: US (occurrence: US)
  Receive Date: 20221104
  Receipt Date: 20230411
  Transmission Date: 20230722
  Serious: No
  Sender: FDA-Public Use
  Company Number: US-BIOGEN-2021BI01067606

PATIENT
  Sex: Female

DRUGS (11)
  1. VUMERITY [Suspect]
     Active Substance: DIROXIMEL FUMARATE
     Indication: Multiple sclerosis
     Dosage: TAKE 2 CAPSULES (462MG) BY MOUTH TWICE DAILY
     Route: 050
     Dates: start: 20211108
  2. VUMERITY [Suspect]
     Active Substance: DIROXIMEL FUMARATE
     Dosage: TAKE 2 CAPSULES (462MG) BY MOUTH TWICE DAILY
     Route: 050
     Dates: start: 20211108
  3. VUMERITY [Suspect]
     Active Substance: DIROXIMEL FUMARATE
     Route: 050
     Dates: start: 20211103
  4. VUMERITY [Suspect]
     Active Substance: DIROXIMEL FUMARATE
     Route: 050
  5. VUMERITY [Suspect]
     Active Substance: DIROXIMEL FUMARATE
     Dosage: TAKE 2 CAPSULES (462MG TOTAL) BY MOUTH TWICE DAILY
     Route: 050
     Dates: start: 20230308
  6. AMOXICILLIN [Suspect]
     Active Substance: AMOXICILLIN
     Indication: Respiratory tract infection
     Route: 050
     Dates: start: 20221031
  7. ASPIRIN [Concomitant]
     Active Substance: ASPIRIN
     Route: 050
  8. NAPROXEN [Concomitant]
     Active Substance: NAPROXEN
     Route: 050
  9. VALTREX [Concomitant]
     Active Substance: VALACYCLOVIR HYDROCHLORIDE
     Route: 050
  10. ZYRTEC [Concomitant]
     Active Substance: CETIRIZINE HYDROCHLORIDE
     Route: 050
  11. MELATONIN [Concomitant]
     Active Substance: MELATONIN
     Route: 050

REACTIONS (9)
  - Product dose omission issue [Recovered/Resolved]
  - Upper respiratory tract infection [Not Recovered/Not Resolved]
  - Ear discomfort [Unknown]
  - COVID-19 [Unknown]
  - Multiple sclerosis relapse [Unknown]
  - Sinus disorder [Recovered/Resolved]
  - Pruritus [Unknown]
  - Hot flush [Unknown]
  - Flushing [Unknown]

NARRATIVE: CASE EVENT DATE: 20210101
